FAERS Safety Report 14068978 (Version 1)
Quarter: 2017Q4

REPORT INFORMATION
  Report Type: Spontaneous
  Country: FR (occurrence: FR)
  Receive Date: 20171010
  Receipt Date: 20171010
  Transmission Date: 20180321
  Serious: Yes (Hospitalization)
  Sender: FDA-Public Use
  Company Number: FR-MERCK KGAA-2029441

PATIENT
  Age: 46 Year
  Sex: Female

DRUGS (2)
  1. NOVOTHYROX [Suspect]
     Active Substance: LEVOTHYROXINE SODIUM
     Indication: PRODUCT USED FOR UNKNOWN INDICATION
     Route: 065
     Dates: start: 201705
  2. CYNOMEL [Concomitant]
     Active Substance: LIOTHYRONINE SODIUM
     Dates: start: 201708

REACTIONS (9)
  - Fall [Recovered/Resolved]
  - Rib fracture [Unknown]
  - Malaise [Recovered/Resolved]
  - Spinal cord compression [Unknown]
  - Haemorrhoids [Recovered/Resolved]
  - Proctalgia [Unknown]
  - Vertigo [Recovered/Resolved]
  - Diarrhoea [Recovered/Resolved]
  - Abdominal pain upper [Recovered/Resolved]

NARRATIVE: CASE EVENT DATE: 20170526
